FAERS Safety Report 21254463 (Version 1)
Quarter: 2022Q3

REPORT INFORMATION
  Report Type: Spontaneous
  Country: FR (occurrence: FR)
  Receive Date: 20220825
  Receipt Date: 20220825
  Transmission Date: 20221026
  Serious: Yes (Death, Other)
  Sender: FDA-Public Use
  Company Number: FR-BRISTOL-MYERS SQUIBB COMPANY-2022-093690

PATIENT
  Age: 84 Year
  Sex: Female
  Weight: 56.4 kg

DRUGS (2)
  1. NIVOLUMAB [Suspect]
     Active Substance: NIVOLUMAB
     Indication: Mesothelioma malignant
     Dosage: 169.2 MG EVERY 2 WEEKS (1 DOSES RECEIVED BEFORE ?DISCONTINUATION)
     Route: 042
     Dates: start: 20220322, end: 20220727
  2. IPILIMUMAB [Suspect]
     Active Substance: IPILIMUMAB
     Indication: Mesothelioma malignant
     Dosage: 0 MG EVERY 6 WEEKS BY INTRAVENOUS ROUTE (0 DOSES RECEIVED BEFORE DISCONTINUATION)
     Route: 042

REACTIONS (2)
  - Death [Fatal]
  - Intentional product use issue [Unknown]

NARRATIVE: CASE EVENT DATE: 20220811
